FAERS Safety Report 4932973-2 (Version None)
Quarter: 2005Q4

REPORT INFORMATION
  Report Type: 
  Country: None (occurrence: None)
  Receive Date: 20051201
  Receipt Date: 20051201
  Transmission Date: 20060501
  Serious: No
  Sender: FDA-Public Use
  Company Number: None

PATIENT
  Age: 43 Year
  Sex: Female

DRUGS (1)
  1. EUROCEL [Suspect]
     Indication: HEPATITIS C
     Dosage: 2 PILLS 3X DAY

REACTIONS (1)
  - DRUG HYPERSENSITIVITY [None]
